FAERS Safety Report 4760148-9 (Version None)
Quarter: 2005Q3

REPORT INFORMATION
  Report Type: 
  Country: None (occurrence: None)
  Receive Date: 20050831
  Receipt Date: 20050811
  Transmission Date: 20060218
  Serious: Yes (Other)
  Sender: FDA-Public Use
  Company Number: US_0508120801

PATIENT
  Age: 4 Year
  Sex: Female
  Weight: 3 kg

DRUGS (2)
  1. HUMALOG [Suspect]
     Dates: start: 20010201
  2. HUMULIN N [Suspect]
     Dates: start: 20010101

REACTIONS (3)
  - DRUG EXPOSURE DURING PREGNANCY [None]
  - PHARMACEUTICAL PRODUCT COMPLAINT [None]
  - RESPIRATORY DISORDER NEONATAL [None]
